FAERS Safety Report 20998057 (Version 2)
Quarter: 2022Q3

REPORT INFORMATION
  Report Type: Report from Study
  Country: CN (occurrence: CN)
  Receive Date: 20220623
  Receipt Date: 20220709
  Transmission Date: 20221026
  Serious: Yes (Other)
  Sender: FDA-Public Use
  Company Number: CN-BoehringerIngelheim-2022-BI-175901

PATIENT

DRUGS (10)
  1. TENECTEPLASE [Suspect]
     Active Substance: TENECTEPLASE
     Indication: Ischaemic stroke
     Route: 042
     Dates: start: 20220308, end: 20220308
  2. ATORVASTATIN CALCIUM [Concomitant]
     Active Substance: ATORVASTATIN CALCIUM
     Indication: Ischaemic stroke
     Dates: start: 20220308, end: 20220315
  3. PANTOPRAZOLE SODIUM [Concomitant]
     Active Substance: PANTOPRAZOLE SODIUM
     Indication: Prophylaxis
     Dates: start: 20220308, end: 20220315
  4. BUTYLPHTHALIDE [Concomitant]
     Active Substance: BUTYLPHTHALIDE
     Indication: Ischaemic stroke
     Dates: start: 20220308, end: 20220315
  5. EDARAVONE [Concomitant]
     Active Substance: EDARAVONE
     Indication: Ischaemic stroke
     Dates: start: 20220308, end: 20220315
  6. PIRACETAM [Concomitant]
     Active Substance: PIRACETAM
     Indication: Ischaemic stroke
  7. ASPIRIN [Concomitant]
     Active Substance: ASPIRIN
     Indication: Antiplatelet therapy
     Dates: start: 20220309, end: 20220315
  8. ASPIRIN [Concomitant]
     Active Substance: ASPIRIN
     Dates: start: 20220316
  9. CLOPIDOGREL BISULFATE [Concomitant]
     Active Substance: CLOPIDOGREL BISULFATE
     Indication: Antiplatelet therapy
     Dates: start: 20220309, end: 20220315
  10. SULFOTANSHINONE SODIUM INJECTION [Concomitant]
     Indication: Ischaemic stroke
     Dates: start: 20220310, end: 20220315

REACTIONS (2)
  - Proctalgia [Recovered/Resolved]
  - Haematochezia [Recovered/Resolved]

NARRATIVE: CASE EVENT DATE: 20220314
